FAERS Safety Report 18359304 (Version 1)
Quarter: 2020Q4

REPORT INFORMATION
  Report Type: Spontaneous
  Country: US (occurrence: US)
  Receive Date: 20201008
  Receipt Date: 20201008
  Transmission Date: 20210114
  Serious: No
  Sender: FDA-Public Use
  Company Number: US-INDIVIOR US-INDV-121529-2019

PATIENT
  Age: 60 Year
  Sex: Female

DRUGS (7)
  1. SUBOXONE [Suspect]
     Active Substance: BUPRENORPHINE HYDROCHLORIDE\NALOXONE HYDROCHLORIDE
     Dosage: 8 MILLIGRAM, Q24H
     Route: 060
     Dates: start: 201803, end: 201812
  2. VITAMIN D                          /00107901/ [Concomitant]
     Active Substance: ERGOCALCIFEROL
     Indication: ARTHRITIS
     Dosage: UNK
     Route: 065
  3. SUBOXONE [Suspect]
     Active Substance: BUPRENORPHINE HYDROCHLORIDE\NALOXONE HYDROCHLORIDE
     Indication: DRUG DEPENDENCE
     Dosage: 8 MILLIGRAM, BID
     Route: 060
     Dates: start: 201802, end: 201803
  4. SUBOXONE [Suspect]
     Active Substance: BUPRENORPHINE HYDROCHLORIDE\NALOXONE HYDROCHLORIDE
     Indication: DRUG DEPENDENCE
     Dosage: UNK, HALF A FILM  PER DAY
     Route: 065
     Dates: start: 20190906
  5. SUBOXONE [Suspect]
     Active Substance: BUPRENORPHINE HYDROCHLORIDE\NALOXONE HYDROCHLORIDE
     Dosage: 8MG, HALF OF A FILM DAILY
     Route: 060
     Dates: start: 201812, end: 2019
  6. NEURONTIN [Concomitant]
     Active Substance: GABAPENTIN
     Indication: PRODUCT USED FOR UNKNOWN INDICATION
     Dosage: UNK, AS PER NEEDED
     Route: 065
  7. DEXILANT [Concomitant]
     Active Substance: DEXLANSOPRAZOLE
     Indication: GASTROOESOPHAGEAL REFLUX DISEASE
     Dosage: UNK
     Route: 065

REACTIONS (10)
  - Illness [Not Recovered/Not Resolved]
  - Therapeutic response unexpected [Unknown]
  - Drug withdrawal syndrome [Not Recovered/Not Resolved]
  - Drug detoxification [Recovered/Resolved]
  - Substance abuse [Not Recovered/Not Resolved]
  - Intentional underdose [Recovered/Resolved]
  - Wrong technique in product usage process [Not Recovered/Not Resolved]
  - Hot flush [Unknown]
  - Feeling of body temperature change [Unknown]
  - Hyperhidrosis [Unknown]

NARRATIVE: CASE EVENT DATE: 201803
